FAERS Safety Report 25497543 (Version 1)
Quarter: 2025Q3

REPORT INFORMATION
  Report Type: Report from Study
  Country: CA (occurrence: CA)
  Receive Date: 20250701
  Receipt Date: 20250701
  Transmission Date: 20251020
  Serious: Yes (Death, Hospitalization, Other)
  Sender: ASTELLAS
  Company Number: CA-SEATTLE GENETICS-2022SGN03878

PATIENT
  Age: 59 Year
  Sex: Male
  Weight: 53 kg

DRUGS (3)
  1. ENFORTUMAB VEDOTIN-EJFV [Suspect]
     Active Substance: ENFORTUMAB VEDOTIN-EJFV
     Indication: Transitional cell carcinoma
     Route: 065
     Dates: start: 20220413
  2. ENFORTUMAB VEDOTIN-EJFV [Suspect]
     Active Substance: ENFORTUMAB VEDOTIN-EJFV
     Route: 065
  3. ENFORTUMAB VEDOTIN-EJFV [Suspect]
     Active Substance: ENFORTUMAB VEDOTIN-EJFV
     Route: 065
     Dates: end: 20220720

REACTIONS (45)
  - Death [Fatal]
  - Fall [Unknown]
  - Haemorrhage urinary tract [Recovering/Resolving]
  - Loss of consciousness [Unknown]
  - Abdominal pain lower [Unknown]
  - Sleep disorder [Unknown]
  - Dyspnoea [Not Recovered/Not Resolved]
  - Dysuria [Unknown]
  - Blood urine present [Recovering/Resolving]
  - Dry mouth [Not Recovered/Not Resolved]
  - Psychiatric symptom [Unknown]
  - Pain [Not Recovered/Not Resolved]
  - Depressed mood [Unknown]
  - Anxiety [Unknown]
  - Somnolence [Unknown]
  - Appetite disorder [Unknown]
  - Malaise [Unknown]
  - Weight abnormal [Unknown]
  - Fear [Unknown]
  - Weight increased [Unknown]
  - Disturbance in attention [Unknown]
  - Frustration tolerance decreased [Unknown]
  - Memory impairment [Unknown]
  - Chest pain [Recovered/Resolved]
  - Anger [Unknown]
  - Sleep disorder [Unknown]
  - Bladder pain [Unknown]
  - Limb mass [Unknown]
  - Fall [Unknown]
  - Emotional distress [Unknown]
  - Dysphagia [Unknown]
  - Discomfort [Unknown]
  - Fine motor skill dysfunction [Unknown]
  - Bradykinesia [Unknown]
  - Incontinence [Unknown]
  - Asthenia [Unknown]
  - Gait disturbance [Unknown]
  - Abdominal pain [Unknown]
  - Constipation [Unknown]
  - Pruritus [Not Recovered/Not Resolved]
  - Fatigue [Not Recovered/Not Resolved]
  - Nausea [Not Recovered/Not Resolved]
  - Rash [Not Recovered/Not Resolved]
  - Decreased appetite [Unknown]
  - Fatigue [Unknown]

NARRATIVE: CASE EVENT DATE: 20220422
